FAERS Safety Report 10034524 (Version 2)
Quarter: 2014Q1

REPORT INFORMATION
  Report Type: Spontaneous
  Country: US (occurrence: ES)
  Receive Date: 20140325
  Receipt Date: 20140325
  Transmission Date: 20141002
  Serious: Yes (Other)
  Sender: FDA-Public Use
  Company Number: ES-FRI-1000040863

PATIENT
  Age: 74 Year
  Sex: Male
  Weight: 81 kg

DRUGS (8)
  1. ROFLUMILAST [Suspect]
     Indication: CHRONIC OBSTRUCTIVE PULMONARY DISEASE
     Dosage: 500 MCG
     Route: 048
     Dates: start: 20121029
  2. DILTIAZEM [Concomitant]
     Route: 048
  3. SINTROM [Concomitant]
     Route: 048
  4. IXIARO [Concomitant]
     Route: 048
  5. ZYLORIC [Concomitant]
     Route: 048
  6. LYRICA [Concomitant]
     Route: 048
  7. DUTASTERIDE [Concomitant]
  8. ANALAREC [Concomitant]

REACTIONS (5)
  - Suicidal ideation [Recovered/Resolved]
  - Restlessness [Unknown]
  - Vertigo [Unknown]
  - Decreased appetite [Not Recovered/Not Resolved]
  - Dyspepsia [Not Recovered/Not Resolved]
